FAERS Safety Report 7445881-2 (Version None)
Quarter: 2011Q2

REPORT INFORMATION
  Report Type: 
  Country: None (occurrence: None)
  Receive Date: 20110419
  Receipt Date: 20110405
  Transmission Date: 20111010
  Serious: Yes (Hospitalization, Other)
  Sender: FDA-Public Use
  Company Number: 201110393

PATIENT
  Age: 17 Year
  Sex: Female

DRUGS (1)
  1. LIORESAL [Suspect]
     Indication: MUSCLE SPASTICITY
     Dosage: MCG, DAILY, INTRATHECAL
     Route: 037

REACTIONS (11)
  - WOUND DEHISCENCE [None]
  - DRUG WITHDRAWAL SYNDROME [None]
  - CLONUS [None]
  - MUSCLE SPASTICITY [None]
  - IMPLANT SITE EFFUSION [None]
  - CONTUSION [None]
  - HYPERTONIA [None]
  - PANCREATITIS [None]
  - IMPLANT SITE INFECTION [None]
  - TENDERNESS [None]
  - CULTURE POSITIVE [None]
